FAERS Safety Report 4353886-3 (Version None)
Quarter: 2004Q2

REPORT INFORMATION
  Report Type: 
  Country: None (occurrence: None)
  Receive Date: 20040430
  Receipt Date: 20040423
  Transmission Date: 20050107
  Serious: Yes (Death, Life-Threatening)
  Sender: FDA-Public Use
  Company Number: MAG-2004-0000257

PATIENT
  Age: 46 Year
  Sex: Female

DRUGS (1)
  1. POVIDONE IODINE [Suspect]
     Indication: POSTOPERATIVE CARE
     Dosage: TOPICAL
     Route: 061
     Dates: start: 20040226, end: 20040303

REACTIONS (6)
  - CONDITION AGGRAVATED [None]
  - HYPERTENSION [None]
  - METABOLIC ACIDOSIS [None]
  - OVERDOSE [None]
  - RENAL FAILURE [None]
  - SEPTIC SHOCK [None]
